FAERS Safety Report 21407839 (Version 2)
Quarter: 2024Q4

REPORT INFORMATION
  Report Type: Spontaneous
  Country: DE (occurrence: DE)
  Receive Date: 20221004
  Receipt Date: 20241014
  Transmission Date: 20250114
  Serious: Yes (Hospitalization, Other)
  Sender: TEVA
  Company Number: DE-ADRED-08014-01

PATIENT
  Age: 50 Year
  Sex: Female

DRUGS (6)
  1. PACLITAXEL [Interacting]
     Active Substance: PACLITAXEL
     Indication: Product used for unknown indication
     Dosage: UNK (LAST DOSE ON THE FIFTH OF OCTOBER)
     Route: 042
  2. LEVOTHYROXINE SODIUM [Concomitant]
     Active Substance: LEVOTHYROXINE SODIUM
     Indication: Product used for unknown indication
     Dosage: 125 UG, QD (1-0-0-0)
     Route: 048
  3. METOPROLOL [Concomitant]
     Active Substance: METOPROLOL
     Indication: Product used for unknown indication
     Dosage: 23.75 MG (HALF A TABLET IF NECESSARY FOR PRE-EXISTING SINUS TACHYCARDIA)
     Route: 048
  4. PERTUZUMAB [Suspect]
     Active Substance: PERTUZUMAB
     Indication: Product used for unknown indication
     Dosage: UNK (LAST DOSE ON OCTOBER 5TH)
     Route: 042
  5. TRASTUZUMAB [Interacting]
     Active Substance: TRASTUZUMAB
     Indication: Product used for unknown indication
     Dosage: UNK (LAST DOSE ON THE FIFTH OF OCTOBER)
     Route: 042
  6. TAMOXIFEN [Suspect]
     Active Substance: TAMOXIFEN
     Indication: Product used for unknown indication
     Dosage: 20 MG, QD (0-0-1-0)
     Route: 048

REACTIONS (9)
  - Angina pectoris [Unknown]
  - Tachycardia [Unknown]
  - Dyspnoea [Unknown]
  - Chest discomfort [Unknown]
  - Chest discomfort [Unknown]
  - Hypertension [Unknown]
  - Dyspnoea exertional [Unknown]
  - Dyspnoea [Unknown]
  - Pericardial effusion [Unknown]
